FAERS Safety Report 20992767 (Version 1)
Quarter: 2022Q2

REPORT INFORMATION
  Report Type: Report from Study
  Country: TW (occurrence: TW)
  Receive Date: 20220622
  Receipt Date: 20220622
  Transmission Date: 20220721
  Serious: Yes (Death, Life-Threatening)
  Sender: FDA-Public Use
  Company Number: TW-ABBVIE-22K-153-4441955-00

PATIENT
  Age: 70 Year
  Sex: Male

DRUGS (1)
  1. HUMIRA [Suspect]
     Active Substance: ADALIMUMAB
     Indication: Psoriatic arthropathy
     Route: 058
     Dates: start: 20210510, end: 20220523

REACTIONS (4)
  - Subdural haemorrhage [Fatal]
  - Loss of consciousness [Unknown]
  - Fall [Unknown]
  - COVID-19 [Fatal]

NARRATIVE: CASE EVENT DATE: 20220601
